FAERS Safety Report 5072309-2 (Version None)
Quarter: 2006Q3

REPORT INFORMATION
  Report Type: 
  Country: None (occurrence: None)
  Receive Date: 20060807
  Receipt Date: 20060623
  Transmission Date: 20061208
  Serious: Yes (Hospitalization, Disabling)
  Sender: FDA-Public Use
  Company Number: JP-AVENTIS-200611954JP

PATIENT
  Age: 30 Year
  Sex: Male
  Weight: 100 kg

DRUGS (8)
  1. AMARYL [Suspect]
     Indication: HYPOGLYCAEMIA
     Route: 048
     Dates: end: 20060518
  2. TANATRIL [Concomitant]
     Indication: HYPERTENSION
     Route: 048
     Dates: start: 20060119
  3. NORVASC [Concomitant]
     Indication: HYPERTENSION
     Route: 048
     Dates: start: 20060119
  4. MICARDIS [Concomitant]
     Indication: HYPERTENSION
     Route: 048
     Dates: start: 20060223
  5. LASIX [Concomitant]
     Indication: NEPHROTIC SYNDROME
     Route: 048
     Dates: start: 20060119
  6. DIART [Concomitant]
     Indication: NEPHROTIC SYNDROME
     Route: 048
     Dates: start: 20060223
  7. PERSANTIN [Concomitant]
     Indication: NEPHROTIC SYNDROME
     Route: 048
     Dates: start: 20060119
  8. CHOLEBRINE [Concomitant]
     Indication: HYPERLIPIDAEMIA
     Route: 048
     Dates: start: 20060523

REACTIONS (1)
  - HYPOGLYCAEMIC COMA [None]
